FAERS Safety Report 5287765-4 (Version None)
Quarter: 2007Q1

REPORT INFORMATION
  Report Type: 
  Country: None (occurrence: None)
  Receive Date: 20070109
  Receipt Date: 20060925
  Transmission Date: 20070707
  Serious: Yes (Disabling)
  Sender: FDA-Public Use
  Company Number: WAES 0610USA01885

PATIENT
  Sex: Male

DRUGS (1)
  1. DECADRON [Suspect]
     Dosage: PO
     Route: 048

REACTIONS (2)
  - ADVERSE DRUG REACTION [None]
  - OSTEONECROSIS [None]
